FAERS Safety Report 10019818 (Version 3)
Quarter: 2016Q3

REPORT INFORMATION
  Report Type: Report from Study
  Country: IE (occurrence: IE)
  Receive Date: 20140318
  Receipt Date: 20160929
  Transmission Date: 20161108
  Serious: Yes (Hospitalization, Other)
  Sender: FDA-Public Use
  Company Number: IE-ACORDA-ACO_35096_2013

PATIENT

DRUGS (7)
  1. DITROPAN [Concomitant]
     Active Substance: OXYBUTYNIN CHLORIDE
     Indication: PRODUCT USED FOR UNKNOWN INDICATION
     Dosage: (5 MG,2 IN 1 D)
     Route: 048
     Dates: start: 20081020
  2. SYMMETREL [Concomitant]
     Active Substance: AMANTADINE HYDROCHLORIDE
     Indication: MULTIPLE SCLEROSIS
     Dosage: (100 MG,2 IN 1 D)
     Route: 048
     Dates: start: 20080909
  3. AMITRIPTYLINE HCL [Concomitant]
     Active Substance: AMITRIPTYLINE
     Indication: MULTIPLE SCLEROSIS
     Dosage: (25 MG,1 IN 1 D)
     Route: 048
     Dates: start: 20120104
  4. NAUDICELLE [Concomitant]
     Indication: MULTIPLE SCLEROSIS
     Dosage: (3 IN 1 D)
     Route: 048
     Dates: start: 20120801
  5. BACLOFEN. [Concomitant]
     Active Substance: BACLOFEN
     Indication: MULTIPLE SCLEROSIS
     Dosage: (10 MG,1 IN 1 D)
     Route: 048
     Dates: start: 20130102
  6. DESMOTABS [Concomitant]
     Active Substance: DESMOPRESSIN
     Indication: MULTIPLE SCLEROSIS
     Dosage: (240 MG,1 IN 1 D)
     Route: 048
     Dates: start: 20110726
  7. FAMPYRA [Suspect]
     Active Substance: DALFAMPRIDINE
     Indication: MULTIPLE SCLEROSIS
     Dosage: 10 MG, BID
     Route: 048
     Dates: start: 20130320, end: 20130321

REACTIONS (1)
  - Seizure [Recovered/Resolved]

NARRATIVE: CASE EVENT DATE: 20130321
